FAERS Safety Report 25895142 (Version 1)
Quarter: 2025Q4

REPORT INFORMATION
  Report Type: Spontaneous
  Country: US (occurrence: US)
  Receive Date: 20251008
  Receipt Date: 20251008
  Transmission Date: 20260117
  Serious: Yes (Hospitalization, Other)
  Sender: CIPLA
  Company Number: US-MLMSERVICE-20250919-PI650506-00082-1

PATIENT

DRUGS (12)
  1. CARBOPLATIN [Suspect]
     Active Substance: CARBOPLATIN
     Indication: Invasive ductal breast carcinoma
     Dosage: 500 MILLIGRAM, UNK (1 TOTAL) (INDUCTION CHEMOTHERAPY REGIMEN)
     Route: 042
     Dates: start: 20220209
  2. CARBOPLATIN [Suspect]
     Active Substance: CARBOPLATIN
     Indication: Hormone receptor positive breast cancer
     Dosage: 500 MILLIGRAM, EVERY 21 DAYS
     Route: 042
     Dates: start: 20220302, end: 20220526
  3. CARBOPLATIN [Suspect]
     Active Substance: CARBOPLATIN
     Indication: HER2 positive breast cancer
  4. DOCETAXEL [Suspect]
     Active Substance: DOCETAXEL
     Indication: Invasive ductal breast carcinoma
     Dosage: 135 MILLIGRAM, (1 TOTAL) (INDUCTION CHEMOTHERAPY REGIMEN)
     Route: 042
     Dates: start: 20220209
  5. DOCETAXEL [Suspect]
     Active Substance: DOCETAXEL
     Indication: Hormone receptor positive breast cancer
     Dosage: 135 MILLIGRAM, EVERY 21 DAYS
     Route: 042
     Dates: start: 20220302, end: 20220526
  6. DOCETAXEL [Suspect]
     Active Substance: DOCETAXEL
     Indication: HER2 positive breast cancer
  7. TRASTUZUMAB [Suspect]
     Active Substance: TRASTUZUMAB
     Indication: Invasive ductal breast carcinoma
     Dosage: 550 MILLIGRAM, (1 TOTAL) (INDUCTION CHEMOTHERAPY REGIMEN)
     Route: 042
     Dates: start: 20220209
  8. TRASTUZUMAB [Suspect]
     Active Substance: TRASTUZUMAB
     Indication: Hormone receptor positive breast cancer
     Dosage: 410 MILLIGRAM, EVERY 21 DAYS
     Route: 042
     Dates: start: 20220302, end: 20220526
  9. TRASTUZUMAB [Suspect]
     Active Substance: TRASTUZUMAB
     Indication: HER2 positive breast cancer
     Dosage: 420 MILLIGRAM, EVERY 21 DAYS
     Route: 042
     Dates: start: 20220718, end: 20230213
  10. PERTUZUMAB [Suspect]
     Active Substance: PERTUZUMAB
     Indication: Invasive ductal breast carcinoma
     Dosage: 840 MILLIGRAM, (1 TOTAL, INDUCTION CHEMOTHERAPY REGIMEN)
     Route: 042
     Dates: start: 20220209
  11. PERTUZUMAB [Suspect]
     Active Substance: PERTUZUMAB
     Indication: Hormone receptor positive breast cancer
     Dosage: 420 MILLIGRAM, EVERY 21 DAYS
     Route: 042
     Dates: start: 20220302, end: 20220526
  12. PERTUZUMAB [Suspect]
     Active Substance: PERTUZUMAB
     Indication: HER2 positive breast cancer

REACTIONS (2)
  - Coronary artery stenosis [Recovered/Resolved]
  - Arteriosclerosis [Recovered/Resolved]

NARRATIVE: CASE EVENT DATE: 20241201
